FAERS Safety Report 24898225 (Version 1)
Quarter: 2025Q1

REPORT INFORMATION
  Report Type: Spontaneous
  Country: IT (occurrence: IT)
  Receive Date: 20250129
  Receipt Date: 20250129
  Transmission Date: 20250409
  Serious: Yes (Hospitalization, Other)
  Sender: JUBILANT
  Company Number: None

PATIENT
  Age: 39 Year
  Sex: Female

DRUGS (7)
  1. INDOMETHACIN [Suspect]
     Active Substance: INDOMETHACIN
     Indication: Headache
     Route: 065
     Dates: start: 2016
  2. INDOMETHACIN [Suspect]
     Active Substance: INDOMETHACIN
     Indication: Migraine without aura
     Route: 065
     Dates: start: 2018
  3. INDOMETHACIN [Suspect]
     Active Substance: INDOMETHACIN
     Indication: Migraine with aura
  4. GALCANEZUMAB [Suspect]
     Active Substance: GALCANEZUMAB
     Indication: Migraine without aura
     Dosage: 120 MG, PER MONTH
     Route: 058
     Dates: start: 202110, end: 202210
  5. GALCANEZUMAB [Suspect]
     Active Substance: GALCANEZUMAB
     Indication: Migraine with aura
     Route: 065
     Dates: start: 202110
  6. PREDNISONE [Concomitant]
     Active Substance: PREDNISONE
     Indication: Migraine without aura
     Route: 065
     Dates: start: 2006
  7. PREDNISONE [Concomitant]
     Active Substance: PREDNISONE
     Indication: Migraine with aura

REACTIONS (2)
  - Intestinal diaphragm disease [Unknown]
  - Intentional product misuse [Unknown]

NARRATIVE: CASE EVENT DATE: 20210101
